FAERS Safety Report 8958472 (Version 1)
Quarter: 2012Q4

REPORT INFORMATION
  Report Type: Spontaneous
  Country: US (occurrence: None)
  Receive Date: 20121205
  Receipt Date: 20121205
  Transmission Date: 20130627
  Serious: Yes (Life-Threatening, Hospitalization)
  Sender: FDA-Public Use
  Company Number: None

PATIENT
  Age: 55 Year
  Sex: Male
  Weight: 74.3 kg

DRUGS (2)
  1. MORPHINE [Suspect]
     Indication: PAIN
     Route: 048
     Dates: start: 20110812, end: 20110814
  2. MORPHINE [Suspect]
     Indication: PAIN
     Route: 042
     Dates: start: 20110812, end: 20110814

REACTIONS (4)
  - Dizziness [None]
  - Sedation [None]
  - Respiratory depression [None]
  - Hypotension [None]
